FAERS Safety Report 9458021 (Version 1)
Quarter: 2013Q3

REPORT INFORMATION
  Report Type: Spontaneous
  Country: SE (occurrence: None)
  Receive Date: 20130812
  Receipt Date: 20130812
  Transmission Date: 20140515
  Serious: Yes (Hospitalization, Other)
  Sender: FDA-Public Use
  Company Number: AUR-APL-2013-06559

PATIENT
  Age: 87 Year
  Sex: Female

DRUGS (13)
  1. CLOPIDOGREL (CLOPIDOGREL) [Suspect]
     Indication: PRODUCT USED FOR UNKNOWN INDICATION
     Dates: start: 20130314, end: 20130415
  2. TROMBYL (ACETYLSALICYLIC ACID) [Suspect]
     Indication: PRODUCT USED FOR UNKNOWN INDICATION
     Dates: start: 20050414
  3. NOVORAPID (INSULIN ASPART) [Concomitant]
  4. LEVAXIN (LEVOTHYROXINE SODIUM) [Concomitant]
  5. SIMVASTATIN (SIMVASTATIN) [Concomitant]
  6. KALCIPOS-DFORTE (CALCIUM CARBONATE) [Concomitant]
  7. ALENDRONATE SODIUM (ALENDRONATE SODIUM) (ALENDRONATE SODIUM) [Concomitant]
  8. PANODIL (PARACETAMOL) [Concomitant]
  9. SALURES (BENDROFLUMETHIAZIDE) [Concomitant]
  10. OVESTERIN (ESTRIOL) [Concomitant]
  11. ENALAPRIL [Concomitant]
  12. METOPROLOL (METOPROLOL) [Concomitant]
  13. NOVOMIX 30 (NOVOMIX) [Concomitant]

REACTIONS (3)
  - Anaemia [None]
  - Gastrointestinal haemorrhage [None]
  - Chest discomfort [None]
